FAERS Safety Report 7381337-3 (Version None)
Quarter: 2011Q1

REPORT INFORMATION
  Report Type: 
  Country: None (occurrence: None)
  Receive Date: 20110323
  Receipt Date: 20110323
  Transmission Date: 20110831
  Serious: Yes (Hospitalization)
  Sender: FDA-Public Use
  Company Number: None

PATIENT
  Age: 26 Year
  Sex: Male
  Weight: 86 kg

DRUGS (1)
  1. VANCOMYCIN [Suspect]
     Indication: PNEUMONITIS
     Dosage: 1500 MG BID IV
     Route: 042
     Dates: start: 20101028, end: 20101030

REACTIONS (1)
  - RENAL TUBULAR NECROSIS [None]
